FAERS Safety Report 8522439-5 (Version None)
Quarter: 2012Q3

REPORT INFORMATION
  Report Type: 
  Country: None (occurrence: None)
  Receive Date: 20120719
  Receipt Date: 20120716
  Transmission Date: 20120928
  Serious: Yes (Other)
  Sender: FDA-Public Use
  Company Number: US-PFIZER INC-2011305330

PATIENT
  Sex: Male

DRUGS (6)
  1. TOPROL-XL [Suspect]
     Dosage: UNK
     Route: 048
  2. ZOLOFT [Suspect]
     Dosage: 100 MG, UNK
  3. EFFEXOR XR [Suspect]
     Dosage: UNK
     Route: 048
  4. NITROSTAT [Suspect]
     Dosage: 0.04 MG, UNK
  5. VENLAFAXINE HYDROCHLORIDE [Concomitant]
     Dosage: 75 MG, UNK
  6. LIPITOR [Suspect]
     Dosage: 40 MG, UNK
     Route: 048

REACTIONS (9)
  - DECREASED APPETITE [None]
  - HEARING IMPAIRED [None]
  - FEELING ABNORMAL [None]
  - MUSCLE SPASMS [None]
  - ABDOMINAL PAIN UPPER [None]
  - HYPOACUSIS [None]
  - MYDRIASIS [None]
  - DISORIENTATION [None]
  - FEELING COLD [None]
